FAERS Safety Report 19975287 (Version 4)
Quarter: 2022Q1

REPORT INFORMATION
  Report Type: Spontaneous
  Country: US (occurrence: US)
  Receive Date: 20211020
  Receipt Date: 20220308
  Transmission Date: 20220423
  Serious: No
  Sender: FDA-Public Use
  Company Number: US-BIOGEN-2021BI01054527

PATIENT
  Age: 17 Year
  Sex: Female

DRUGS (1)
  1. TYSABRI [Suspect]
     Active Substance: NATALIZUMAB
     Indication: Multiple sclerosis
     Dosage: INFUSED OVER 1 HOUR
     Route: 065
     Dates: start: 20210916, end: 20211020

REACTIONS (1)
  - Hypersensitivity [Unknown]

NARRATIVE: CASE EVENT DATE: 20210901
